FAERS Safety Report 14599704 (Version 1)
Quarter: 2018Q1

REPORT INFORMATION
  Report Type: Report from Study
  Country: FR (occurrence: FR)
  Receive Date: 20180305
  Receipt Date: 20180305
  Transmission Date: 20180509
  Serious: Yes (Other)
  Sender: FDA-Public Use
  Company Number: FR-TEVA-2018-FR-863954

PATIENT
  Age: 52 Year
  Sex: Male

DRUGS (2)
  1. VINORELBINE [Suspect]
     Active Substance: VINORELBINE\VINORELBINE TARTRATE
     Indication: SALIVARY GLAND CANCER STAGE III
     Dosage: 351 MG; CUMULATIVE DOSE
     Route: 065
  2. CISPLATIN. [Suspect]
     Active Substance: CISPLATIN
     Indication: SALIVARY GLAND CANCER STAGE III
     Dosage: 480 MG; CUMULATIVE DOSE
     Route: 065

REACTIONS (1)
  - Condition aggravated [Recovering/Resolving]
